FAERS Safety Report 13892189 (Version 1)
Quarter: 2017Q3

REPORT INFORMATION
  Report Type: Spontaneous
  Country: NP (occurrence: NP)
  Receive Date: 20170822
  Receipt Date: 20170822
  Transmission Date: 20171127
  Serious: Yes (Death, Hospitalization)
  Sender: FDA-Public Use
  Company Number: NP-NORTH CREEK PHARMACEUTICALS LLC-2017VTS00651

PATIENT

DRUGS (3)
  1. RIFAMPICIN [Concomitant]
     Active Substance: RIFAMPIN
     Indication: LEPROSY
     Dosage: 600 MG, 1X/MONTH
     Route: 065
  2. CLOFAZIMINE [Concomitant]
     Active Substance: CLOFAZIMINE
     Indication: LEPROSY
     Dosage: 300 MG, 1X/MONTH + 50 MG, 1X/DAY
     Route: 065
  3. DAPSONE. [Suspect]
     Active Substance: DAPSONE
     Indication: LEPROSY
     Dosage: 100 MG, 1X/DAY
     Route: 065

REACTIONS (2)
  - Jaundice [Fatal]
  - Drug reaction with eosinophilia and systemic symptoms [Fatal]
